FAERS Safety Report 5644867-8 (Version None)
Quarter: 2008Q1

REPORT INFORMATION
  Report Type: 
  Country: None (occurrence: None)
  Receive Date: 20080229
  Receipt Date: 20070918
  Transmission Date: 20080703
  Serious: No
  Sender: FDA-Public Use
  Company Number: A0683876A

PATIENT
  Sex: Male

DRUGS (1)
  1. VALACYCLOVIR [Suspect]
     Indication: DRUG USE FOR UNKNOWN INDICATION

REACTIONS (2)
  - ADVERSE EVENT [None]
  - DRUG EFFECT DECREASED [None]
